FAERS Safety Report 8465244-0 (Version None)
Quarter: 2012Q2

REPORT INFORMATION
  Report Type: 
  Country: None (occurrence: None)
  Receive Date: 20120626
  Receipt Date: 20120621
  Transmission Date: 20120825
  Serious: Yes (Other)
  Sender: FDA-Public Use
  Company Number: PHHY2012AU048740

PATIENT
  Sex: Female

DRUGS (7)
  1. ARAVA [Concomitant]
     Dosage: UNK UKN, UNK
  2. ZOLEDRONOC ACID [Suspect]
     Dosage: UNK UKN, UNK
     Route: 042
     Dates: start: 20120601
  3. NORVASC [Concomitant]
     Dosage: UNK UKN, UNK
  4. METHOTREXATE [Concomitant]
     Dosage: UNK UKN, UNK
  5. FOLIC ACID [Concomitant]
     Dosage: UNK UKN, UNK
  6. MICARDIS [Concomitant]
     Dosage: UNK UKN, UNK
  7. EZETIMIBE [Concomitant]
     Dosage: UNK UKN, UNK

REACTIONS (9)
  - RETINAL HAEMORRHAGE [None]
  - VITREOUS FLOATERS [None]
  - BLINDNESS [None]
  - PHOTOPSIA [None]
  - EYE PAIN [None]
  - VISUAL ACUITY REDUCED [None]
  - VISION BLURRED [None]
  - RETINAL TEAR [None]
  - ARTHRALGIA [None]
